FAERS Safety Report 15012379 (Version 1)
Quarter: 2018Q2

REPORT INFORMATION
  Report Type: Spontaneous
  Country: US (occurrence: US)
  Receive Date: 20180530
  Receipt Date: 20180530
  Transmission Date: 20180711
  Serious: Yes (Disabling)
  Sender: FDA-Public Use
  Company Number: None

PATIENT
  Age: 64 Year
  Sex: Female
  Weight: 85.5 kg

DRUGS (6)
  1. LEVOFLOXAN [Suspect]
     Active Substance: LEVOFLOXACIN
     Indication: URINARY TRACT INFECTION
     Dates: start: 20170607, end: 20170610
  2. VITAMIN D [Concomitant]
     Active Substance: CHOLECALCIFEROL
  3. VITAMIN C [Concomitant]
     Active Substance: ASCORBIC ACID
  4. MAGNESIUM [Concomitant]
     Active Substance: MAGNESIUM
  5. RESTASIS [Concomitant]
     Active Substance: CYCLOSPORINE
  6. VIT B [Concomitant]
     Active Substance: VITAMIN B

REACTIONS (4)
  - Neuropathy peripheral [None]
  - Pain in extremity [None]
  - Gait disturbance [None]
  - Meniscus injury [None]

NARRATIVE: CASE EVENT DATE: 20170615
